FAERS Safety Report 6100791-8 (Version None)
Quarter: 2009Q1

REPORT INFORMATION
  Report Type: 
  Country: None (occurrence: None)
  Receive Date: 20090303
  Receipt Date: 20090220
  Transmission Date: 20090719
  Serious: Yes (Hospitalization)
  Sender: FDA-Public Use
  Company Number: JP-BAXTER-2009BH002942

PATIENT
  Age: 78 Year
  Sex: Male

DRUGS (22)
  1. ENDOXAN BAXTER [Suspect]
     Indication: LYMPHOMA
     Route: 041
     Dates: start: 20081109, end: 20081109
  2. LASTET [Suspect]
     Indication: LYMPHOMA
     Route: 041
     Dates: end: 20081109
  3. ONCOVIN [Suspect]
     Indication: LYMPHOMA
     Route: 041
     Dates: end: 20081109
  4. PREDONINE [Suspect]
     Indication: LYMPHOMA
     Route: 048
     Dates: end: 20081111
  5. ADRIACIN [Suspect]
     Indication: LYMPHOMA
     Route: 041
     Dates: end: 20081109
  6. ACYCLOVIR [Suspect]
     Indication: LYMPHOMA
     Route: 041
     Dates: start: 20081117, end: 20081124
  7. OXINORM [Concomitant]
     Indication: CANCER PAIN
     Route: 048
     Dates: start: 20081106, end: 20081123
  8. OXYCODONE [Concomitant]
     Indication: DRUG USE FOR UNKNOWN INDICATION
     Route: 048
  9. VALSARTAN [Concomitant]
     Indication: DRUG USE FOR UNKNOWN INDICATION
     Route: 048
  10. PRAVASTATIN [Concomitant]
     Indication: DRUG USE FOR UNKNOWN INDICATION
     Route: 048
  11. FAMOTIDINE [Concomitant]
     Indication: DRUG USE FOR UNKNOWN INDICATION
     Route: 048
  12. GASLON [Concomitant]
     Indication: DRUG USE FOR UNKNOWN INDICATION
     Route: 048
  13. CYANOCOBALAMIN [Concomitant]
     Indication: DRUG USE FOR UNKNOWN INDICATION
     Route: 048
  14. MAGNESIUM OXIDE [Concomitant]
     Indication: DRUG USE FOR UNKNOWN INDICATION
     Route: 048
  15. TELEMINSOFT [Concomitant]
     Indication: DRUG USE FOR UNKNOWN INDICATION
     Route: 054
  16. CALONAL [Concomitant]
     Indication: DRUG USE FOR UNKNOWN INDICATION
     Route: 048
     Dates: start: 20081112
  17. ARASENA A [Concomitant]
     Indication: DRUG USE FOR UNKNOWN INDICATION
     Route: 065
     Dates: start: 20081117
  18. LOXOPROFEN [Concomitant]
     Indication: DRUG USE FOR UNKNOWN INDICATION
     Route: 048
  19. GRANISETRON [Concomitant]
     Indication: DRUG USE FOR UNKNOWN INDICATION
     Route: 041
     Dates: end: 20081109
  20. MEYLON [Concomitant]
     Indication: DRUG USE FOR UNKNOWN INDICATION
     Route: 042
     Dates: start: 20081109, end: 20081109
  21. MAXIPIME [Concomitant]
     Indication: DRUG USE FOR UNKNOWN INDICATION
     Route: 041
     Dates: start: 20081116, end: 20081123
  22. NEUTROGIN [Concomitant]
     Indication: DRUG USE FOR UNKNOWN INDICATION
     Route: 058
     Dates: start: 20081116, end: 20081123

REACTIONS (5)
  - BLOOD ALKALINE PHOSPHATASE INCREASED [None]
  - FEBRILE NEUTROPENIA [None]
  - GAMMA-GLUTAMYLTRANSFERASE INCREASED [None]
  - HERPES ZOSTER [None]
  - THROMBOCYTOPENIA [None]
